FAERS Safety Report 11655022 (Version 1)
Quarter: 2015Q4

REPORT INFORMATION
  Report Type: Spontaneous
  Country: US (occurrence: US)
  Receive Date: 20151023
  Receipt Date: 20151023
  Transmission Date: 20160304
  Serious: Yes (Hospitalization, Other)
  Sender: FDA-Public Use
  Company Number: US-ACTAVIS-2015-22729

PATIENT
  Age: 39 Year
  Sex: Female

DRUGS (1)
  1. METHYLDOPA (UNKNOWN) [Suspect]
     Active Substance: METHYLDOPA
     Indication: ESSENTIAL HYPERTENSION
     Dosage: UNK
     Route: 065

REACTIONS (2)
  - Drug-induced liver injury [Recovered/Resolved]
  - Autoimmune disorder [Recovered/Resolved]
